FAERS Safety Report 5567450-1 (Version None)
Quarter: 2007Q4

REPORT INFORMATION
  Report Type: 
  Country: None (occurrence: None)
  Receive Date: 20071214
  Receipt Date: 20071203
  Transmission Date: 20080405
  Serious: Yes (Hospitalization)
  Sender: FDA-Public Use
  Company Number: 02100-JPN-07-0718

PATIENT
  Age: 69 Year
  Sex: Female

DRUGS (13)
  1. CILOSTAZOL [Suspect]
     Dosage: ONE OF 200 MG
     Route: 048
     Dates: start: 20070911
  2. ASPIRIN [Suspect]
     Dosage: 200 MG ORAL
     Route: 048
  3. CLOPIDOGREL [Suspect]
     Dosage: 75 MG ORAL
     Route: 048
  4. ASPIRIN [Suspect]
     Dosage: 200 MG ORAL
     Route: 048
  5. CLOPIDOGREL [Suspect]
     Dosage: 75 MG ORAL
     Route: 048
  6. ASPIRIN [Concomitant]
  7. CLOPIDOGREL [Concomitant]
  8. SIMVASTATIN [Concomitant]
  9. GLIMEPIRIDE [Concomitant]
  10. VALSARTAN [Concomitant]
  11. BETALOG [Concomitant]
  12. ISOSORBIDE DINITRATE [Concomitant]
  13. ALPRAZOLAM [Concomitant]

REACTIONS (4)
  - ANGINA PECTORIS [None]
  - CHEST PAIN [None]
  - DYSPNOEA [None]
  - GASTRIC ULCER [None]
